FAERS Safety Report 10159719 (Version 1)
Quarter: 2014Q2

REPORT INFORMATION
  Report Type: Spontaneous
  Country: TW (occurrence: TW)
  Receive Date: 20140508
  Receipt Date: 20140508
  Transmission Date: 20141212
  Serious: Yes (Hospitalization)
  Sender: FDA-Public Use
  Company Number: TW-AMGEN INC.-TWNSP2014032901

PATIENT
  Age: 15 Year
  Sex: Male

DRUGS (2)
  1. ENBREL [Suspect]
     Indication: JUVENILE IDIOPATHIC ARTHRITIS
     Dosage: 25 MG, WEEKLY
     Route: 058
     Dates: start: 20090120
  2. ENBREL [Suspect]
     Dosage: 25 MG, MONTHLY
     Route: 058

REACTIONS (3)
  - Nasopharyngeal cancer [Unknown]
  - Pyrexia [Unknown]
  - Tonsillitis [Unknown]
